FAERS Safety Report 11073070 (Version 1)
Quarter: 2015Q2

REPORT INFORMATION
  Report Type: Spontaneous
  Country: US (occurrence: US)
  Receive Date: 20150428
  Receipt Date: 20150428
  Transmission Date: 20150821
  Serious: No
  Sender: FDA-Public Use
  Company Number: US-MYLANLABS-2014M1006371

PATIENT
  Sex: Female

DRUGS (4)
  1. ATIVAN [Suspect]
     Active Substance: LORAZEPAM
     Dosage: 0.5 MG, QD
  2. ATIVAN [Suspect]
     Active Substance: LORAZEPAM
     Dosage: 2.5 MG, UNK
  3. LORAZEPAM. [Suspect]
     Active Substance: LORAZEPAM
     Dosage: 0.5 MG, QD
  4. LORAZEPAM. [Suspect]
     Active Substance: LORAZEPAM
     Dosage: 2.5 MG, UNK

REACTIONS (8)
  - Myalgia [Unknown]
  - Fatigue [Unknown]
  - Drug withdrawal syndrome [Unknown]
  - Anxiety [Unknown]
  - Drug tolerance [Unknown]
  - Amnesia [Unknown]
  - Nausea [Unknown]
  - Crying [Unknown]
